FAERS Safety Report 8024668-6 (Version None)
Quarter: 2011Q4

REPORT INFORMATION
  Report Type: 
  Country: None (occurrence: None)
  Receive Date: 20111130
  Receipt Date: 20110412
  Transmission Date: 20120403
  Serious: Yes (Hospitalization)
  Sender: FDA-Public Use
  Company Number: PHHY2011US31919

PATIENT
  Age: 47 Year
  Sex: Female
  Weight: 64.9 kg

DRUGS (3)
  1. ROBAXIN [Concomitant]
  2. TEKTURNA [Suspect]
     Indication: HYPERTENSION
     Dosage: 1 DF, QD (300/25)
  3. KLOAPIN [Concomitant]

REACTIONS (2)
  - GASTROINTESTINAL PAIN [None]
  - DIARRHOEA [None]
